FAERS Safety Report 8394985-9 (Version None)
Quarter: 2012Q2

REPORT INFORMATION
  Report Type: 
  Country: None (occurrence: None)
  Receive Date: 20120530
  Receipt Date: 20120329
  Transmission Date: 20120825
  Serious: Yes (Hospitalization)
  Sender: FDA-Public Use
  Company Number: US-GLAXOSMITHKLINE-A0972409A

PATIENT
  Age: 8 Year
  Sex: Female
  Weight: 11.7 kg

DRUGS (1)
  1. FLOLAN [Suspect]
     Indication: PULMONARY ARTERIAL HYPERTENSION
     Route: 042
     Dates: start: 20080516

REACTIONS (1)
  - ARTHRALGIA [None]
